FAERS Safety Report 9695728 (Version 2)
Quarter: 2013Q4

REPORT INFORMATION
  Report Type: Spontaneous
  Country: JP (occurrence: JP)
  Receive Date: 20131119
  Receipt Date: 20131223
  Transmission Date: 20140711
  Serious: Yes (Other)
  Sender: FDA-Public Use
  Company Number: JP-PFIZER INC-2013326877

PATIENT
  Age: 69 Year
  Sex: Female

DRUGS (5)
  1. TOVIAZ [Suspect]
     Indication: HYPERTONIC BLADDER
     Dosage: 4 MG, 1X/DAY
     Route: 048
     Dates: start: 20131028, end: 2013
  2. CO-DIO EX [Concomitant]
     Indication: HYPERTENSION
     Dosage: UNK
     Route: 048
     Dates: start: 20120508
  3. BONALON [Concomitant]
     Indication: OSTEOPOROSIS
     Dosage: 35 MG, WEEKLY
     Route: 048
     Dates: start: 20110929
  4. BEZATOL SR [Concomitant]
     Indication: HYPERLIPIDAEMIA
     Dosage: 100 MG, 2X/DAY
     Route: 048
     Dates: start: 20120508
  5. GOSHAJINKIGAN [Concomitant]
     Dosage: 7.5 G, UNK
     Route: 048

REACTIONS (3)
  - Hypoaesthesia oral [Recovered/Resolved]
  - Dysgeusia [Recovered/Resolved]
  - Glossodynia [Recovered/Resolved]
